FAERS Safety Report 9991439 (Version 1)
Quarter: 2014Q1

REPORT INFORMATION
  Report Type: Report from Study
  Country: US (occurrence: US)
  Receive Date: 20140310
  Receipt Date: 20140310
  Transmission Date: 20141002
  Serious: No
  Sender: FDA-Public Use
  Company Number: US-ABBVIE-13P-163-1133576-00

PATIENT
  Sex: Female

DRUGS (7)
  1. HUMIRA [Suspect]
     Indication: CROHN^S DISEASE
     Dosage: WEEKLY
     Dates: start: 201209
  2. AZULFIDINE [Concomitant]
     Indication: PRODUCT USED FOR UNKNOWN INDICATION
  3. TWO THYROID PILLS [Concomitant]
     Indication: PRODUCT USED FOR UNKNOWN INDICATION
     Dosage: EVERY DAY
  4. POTASSIUM [Concomitant]
     Indication: MINERAL SUPPLEMENTATION
     Dosage: EVERY DAY
  5. VITAMIN C [Concomitant]
     Indication: NUTRITIONAL SUPPLEMENTATION
     Dosage: EVERT DAY
  6. VITAMIN D [Concomitant]
     Indication: VITAMIN SUPPLEMENTATION
     Dosage: EVERY DAY
  7. PLAQUENIL [Concomitant]
     Indication: RHEUMATOID ARTHRITIS
     Dosage: EVERY DAY

REACTIONS (1)
  - Paraesthesia [Not Recovered/Not Resolved]
